FAERS Safety Report 4801466-5 (Version None)
Quarter: 2005Q4

REPORT INFORMATION
  Report Type: 
  Country: None (occurrence: None)
  Receive Date: 20051018
  Receipt Date: 20051006
  Transmission Date: 20060501
  Serious: Yes (Other)
  Sender: FDA-Public Use
  Company Number: US-JNJFOC-20051001323

PATIENT
  Sex: Female
  Weight: 61.69 kg

DRUGS (19)
  1. INFLIXIMAB [Suspect]
     Route: 042
  2. INFLIXIMAB [Suspect]
     Indication: RHEUMATOID ARTHRITIS
     Route: 042
  3. CARDENE [Concomitant]
  4. PROPRANOLOL [Concomitant]
  5. CAPTOPRIL [Concomitant]
  6. AZATHIOPRINE [Concomitant]
  7. PREDNISONE [Concomitant]
  8. ZOCOR [Concomitant]
  9. SYNTHROID [Concomitant]
  10. QUESTRAN [Concomitant]
  11. GLUCOSAMINE [Concomitant]
  12. MULTI-VITAMIN [Concomitant]
  13. MULTI-VITAMIN [Concomitant]
  14. MULTI-VITAMIN [Concomitant]
  15. MULTI-VITAMIN [Concomitant]
  16. MULTI-VITAMIN [Concomitant]
  17. MULTI-VITAMIN [Concomitant]
  18. MULTI-VITAMIN [Concomitant]
  19. MULTI-VITAMIN [Concomitant]

REACTIONS (2)
  - HISTOPLASMOSIS [None]
  - SKIN CANCER [None]
